FAERS Safety Report 15092835 (Version 4)
Quarter: 2020Q1

REPORT INFORMATION
  Report Type: Report from Study
  Country: US (occurrence: US)
  Receive Date: 20180629
  Receipt Date: 20200302
  Transmission Date: 20200409
  Serious: Yes (Hospitalization, Other)
  Sender: FDA-Public Use
  Company Number: US-UCBSA-2018027915

PATIENT
  Age: 76 Year
  Sex: Male
  Weight: 59.9 kg

DRUGS (18)
  1. SINEMET [Concomitant]
     Active Substance: CARBIDOPA\LEVODOPA
     Indication: PARKINSON^S DISEASE
     Dosage: UNK
     Dates: start: 2009
  2. PROZAC [Concomitant]
     Active Substance: FLUOXETINE HYDROCHLORIDE
     Indication: DEPRESSION
     Dosage: 20 MG
     Route: 048
     Dates: start: 201712
  3. ACIDOPHILUS/PECTIN [Concomitant]
     Indication: PRODUCT USED FOR UNKNOWN INDICATION
  4. MIRAPEX [Concomitant]
     Active Substance: PRAMIPEXOLE DIHYDROCHLORIDE
     Indication: PARKINSON^S DISEASE
     Dosage: UNK
     Route: 048
     Dates: start: 2009
  5. KEPPRA [Suspect]
     Active Substance: LEVETIRACETAM
     Indication: SEIZURE PROPHYLAXIS
     Dosage: 750 MG, 2X/DAY (BID)
     Route: 048
     Dates: start: 201712
  6. KEPPRA [Suspect]
     Active Substance: LEVETIRACETAM
     Indication: OFF LABEL USE
  7. NIZORAL [Concomitant]
     Active Substance: KETOCONAZOLE
     Indication: FUNGAL SKIN INFECTION
     Dosage: UNK
     Dates: start: 201712
  8. LACOSAMIDE. [Suspect]
     Active Substance: LACOSAMIDE
     Indication: OFF LABEL USE
  9. LACOSAMIDE. [Suspect]
     Active Substance: LACOSAMIDE
     Indication: SEIZURE
     Dosage: 100 MG, 2X/DAY (BID)
     Route: 048
     Dates: start: 20180422
  10. BACLOFEN. [Concomitant]
     Active Substance: BACLOFEN
     Indication: PRODUCT USED FOR UNKNOWN INDICATION
     Dosage: 1 MG/ML
  11. TYLENOL [Concomitant]
     Active Substance: ACETAMINOPHEN
     Indication: PRODUCT USED FOR UNKNOWN INDICATION
     Dosage: 325 MG
  12. LOVENOX [Concomitant]
     Active Substance: ENOXAPARIN SODIUM
     Indication: ANTICOAGULANT THERAPY
  13. TENOFOVIR [Concomitant]
     Active Substance: TENOFOVIR
     Indication: PROPHYLAXIS
     Dosage: UNK
     Dates: start: 2009
  14. GENERLAC [Concomitant]
     Active Substance: LACTULOSE
     Indication: CONSTIPATION
     Dosage: UNK
     Dates: start: 201712
  15. TRIAMCINOLONE [Concomitant]
     Active Substance: TRIAMCINOLONE
     Indication: PRODUCT USED FOR UNKNOWN INDICATION
     Dosage: UNK
  16. LOSARTAN. [Concomitant]
     Active Substance: LOSARTAN
     Indication: HYPERTENSION
     Dosage: UNK
     Route: 048
     Dates: start: 2018
  17. LACOSAMIDE. [Suspect]
     Active Substance: LACOSAMIDE
     Indication: EPILEPSY
     Dosage: 100 MG TWICE DAILY AND 150 MG TWICE DAILY
     Route: 048
  18. DUONEB [Concomitant]
     Active Substance: ALBUTEROL SULFATE\IPRATROPIUM BROMIDE
     Indication: PRODUCT USED FOR UNKNOWN INDICATION

REACTIONS (7)
  - Seizure [Recovered/Resolved]
  - Hypertension [Not Recovered/Not Resolved]
  - Prescribed overdose [Unknown]
  - Brain abscess [Recovering/Resolving]
  - Intentional product misuse [Unknown]
  - Urinary tract infection [Unknown]
  - Off label use [Unknown]

NARRATIVE: CASE EVENT DATE: 201712
